FAERS Safety Report 9665730 (Version 1)
Quarter: 2013Q4

REPORT INFORMATION
  Report Type: Spontaneous
  Country: FI (occurrence: FI)
  Receive Date: 20131104
  Receipt Date: 20131104
  Transmission Date: 20140711
  Serious: Yes (Other)
  Sender: FDA-Public Use
  Company Number: PHHY2013FI124071

PATIENT
  Age: 62 Year
  Sex: Male

DRUGS (3)
  1. TRILEPTAL [Suspect]
     Indication: EPILEPSY
     Dosage: UNK UKN, UNK
  2. NORVASC [Concomitant]
  3. BETA BLOCKING AGENTS [Concomitant]

REACTIONS (1)
  - Lip and/or oral cavity cancer [Not Recovered/Not Resolved]
